FAERS Safety Report 7992720 (Version 9)
Quarter: 2013Q1

REPORT INFORMATION
  Report Type: Other
  Country: JP (occurrence: JP)
  Receive Date: 20110615
  Receipt Date: 20130114
  Transmission Date: 20140127
  Serious: Yes (Hospitalization)
  Sender: FDA-Public Use
  Company Number: JP-ABBOTT-11P-087-0731910-00

PATIENT
  Age: 57 Year
  Sex: Male
  Weight: 48 kg

DRUGS (3)
  1. HUMIRA [Suspect]
     Indication: CROHN^S DISEASE
     Route: 058
     Dates: start: 20110318, end: 20110318
  2. HUMIRA [Suspect]
     Dates: start: 20110401, end: 20110401
  3. HUMIRA [Suspect]
     Dates: start: 20110415, end: 20110528

REACTIONS (6)
  - Gastrointestinal stoma complication [Unknown]
  - Tuberculosis [Recovered/Resolved]
  - Dehydration [Unknown]
  - Quality of life decreased [Unknown]
  - Short-bowel syndrome [Unknown]
  - Hyperuricaemia [Unknown]
